FAERS Safety Report 5212382-1 (Version None)
Quarter: 2006Q4

REPORT INFORMATION
  Report Type: 
  Country: None (occurrence: None)
  Receive Date: 20061130
  Receipt Date: 20060523
  Transmission Date: 20070319
  Serious: Yes (Hospitalization, Other)
  Sender: FDA-Public Use
  Company Number: WAES 0605USA04433

PATIENT
  Age: 48 Year
  Sex: Male
  Weight: 79.8331 kg

DRUGS (14)
  1. FOSAMAX [Suspect]
     Indication: OSTEOPENIA
     Dosage: SEE IMAGE
     Route: 048
     Dates: start: 20031205, end: 20050922
  2. FOSAMAX [Suspect]
     Indication: OSTEOPOROSIS
     Dosage: SEE IMAGE
     Route: 048
     Dates: start: 20031205, end: 20050922
  3. FOSAMAX [Suspect]
     Indication: OSTEOPENIA
     Dosage: SEE IMAGE
     Route: 048
     Dates: start: 20050922, end: 20060108
  4. FOSAMAX [Suspect]
     Indication: OSTEOPOROSIS
     Dosage: SEE IMAGE
     Route: 048
     Dates: start: 20050922, end: 20060108
  5. DEPAKOTE [Concomitant]
  6. EFFEXOR XR [Concomitant]
  7. SEROQUEL [Concomitant]
  8. ZOCOR [Concomitant]
  9. ACETAMINOPHEN [Concomitant]
  10. BUPROPION HYDROCHLORIDE [Concomitant]
  11. CLONAZEPAM [Concomitant]
  12. LITHIUM CITRATE [Concomitant]
  13. PROPRANOLOL HYDROCHLORIDE [Concomitant]
  14. .. [Concomitant]

REACTIONS (1)
  - OSTEONECROSIS [None]
